FAERS Safety Report 9991173 (Version 1)
Quarter: 2014Q1

REPORT INFORMATION
  Report Type: Report from Study
  Country: US (occurrence: US)
  Receive Date: 20140310
  Receipt Date: 20140310
  Transmission Date: 20141002
  Serious: No
  Sender: FDA-Public Use
  Company Number: US-ABBVIE-13P-163-1131689-00

PATIENT
  Age: 56 Year
  Sex: Female

DRUGS (13)
  1. HUMIRA [Suspect]
     Indication: CROHN^S DISEASE
     Dates: start: 20130729, end: 20130729
  2. HUMIRA [Suspect]
  3. SERTRALINE [Concomitant]
     Indication: DEPRESSION
     Dosage: 100 MG DAILY
  4. HYDROXYZINE HCL [Concomitant]
     Indication: ANXIETY
     Dosage: 10 MG 1-2 TABS 3 TIMES DAILY AS NEEDED
  5. LISINOPRIL/HCTZ [Concomitant]
     Indication: HYPERTENSION
     Dosage: 20/25 MG DAILY
  6. TRAMADOL HCL [Concomitant]
     Indication: PAIN
     Dosage: 50 MG 1-2 TABS THREE TIMES A DAY
  7. VITAMIN D3 [Concomitant]
     Indication: VITAMIN D DECREASED
     Dosage: 2000 UNITS DAILY
  8. METFORMIN [Concomitant]
     Indication: DIABETES MELLITUS
     Dosage: AT NIGHT
  9. SIMVASTATIN [Concomitant]
     Indication: BLOOD CHOLESTEROL INCREASED
     Dosage: 20 MG AT NIGHT
  10. CALCIUM [Concomitant]
     Indication: MINERAL SUPPLEMENTATION
  11. LEVOTHYROXINE [Concomitant]
     Indication: HYPOTHYROIDISM
     Dosage: 125 MCG DAILY
  12. OMEPRAZOLE ACID REDUCER [Concomitant]
     Indication: GASTROOESOPHAGEAL REFLUX DISEASE
     Dosage: DAILY
  13. B12 [Concomitant]
     Indication: VITAMIN SUPPLEMENTATION

REACTIONS (1)
  - Injection site pain [Recovered/Resolved]
